FAERS Safety Report 7492959-3 (Version None)
Quarter: 2011Q2

REPORT INFORMATION
  Report Type: 
  Country: None (occurrence: None)
  Receive Date: 20110520
  Receipt Date: 20110506
  Transmission Date: 20111010
  Serious: Yes (Death, Hospitalization)
  Sender: FDA-Public Use
  Company Number: DE-JNJFOC-20101204139

PATIENT
  Sex: Male
  Weight: 165 kg

DRUGS (18)
  1. CARBABETA [Concomitant]
     Indication: PRODUCT USED FOR UNKNOWN INDICATION
  2. MELNEURIN [Concomitant]
     Indication: PRODUCT USED FOR UNKNOWN INDICATION
  3. LORAZEPAM [Concomitant]
     Indication: PRODUCT USED FOR UNKNOWN INDICATION
  4. NOVALGIN [Concomitant]
     Indication: PRODUCT USED FOR UNKNOWN INDICATION
  5. FERROUS SULFATE TAB [Concomitant]
     Indication: PRODUCT USED FOR UNKNOWN INDICATION
  6. TAPENTADOL [Suspect]
     Indication: ARTHRALGIA
     Route: 048
     Dates: start: 20101125, end: 20101125
  7. TAPENTADOL [Suspect]
     Route: 048
     Dates: start: 20101126, end: 20101203
  8. TAPENTADOL [Suspect]
     Indication: BACK PAIN
     Route: 048
     Dates: start: 20101125, end: 20101125
  9. TAPENTADOL [Suspect]
     Route: 048
     Dates: start: 20101126, end: 20101203
  10. RAMIPRIL [Concomitant]
     Indication: PRODUCT USED FOR UNKNOWN INDICATION
  11. CALCIUM + D3 [Concomitant]
     Indication: PRODUCT USED FOR UNKNOWN INDICATION
  12. MOVIPREP [Concomitant]
     Indication: PRODUCT USED FOR UNKNOWN INDICATION
  13. MUSCLE RELAXANT [Concomitant]
     Route: 065
  14. PANTOPRAZOLE [Concomitant]
     Indication: PRODUCT USED FOR UNKNOWN INDICATION
  15. DICLOFENAC SODIUM [Concomitant]
     Indication: PRODUCT USED FOR UNKNOWN INDICATION
  16. NORMALIP PRO [Concomitant]
     Indication: PRODUCT USED FOR UNKNOWN INDICATION
  17. ACTONEL EINMAL WOECHENTLICH [Concomitant]
     Indication: PRODUCT USED FOR UNKNOWN INDICATION
  18. FRAXIPARIN [Concomitant]
     Indication: PRODUCT USED FOR UNKNOWN INDICATION

REACTIONS (2)
  - SEPSIS [None]
  - DIARRHOEA [None]
